FAERS Safety Report 13485832 (Version 1)
Quarter: 2017Q2

REPORT INFORMATION
  Report Type: Spontaneous
  Country: PE (occurrence: PE)
  Receive Date: 20170426
  Receipt Date: 20170426
  Transmission Date: 20170830
  Serious: Yes (Hospitalization, Other)
  Sender: FDA-Public Use
  Company Number: PE-GLAXOSMITHKLINE-PE2017GSK056420

PATIENT
  Age: 78 Year
  Sex: Male

DRUGS (1)
  1. DUODART [Suspect]
     Active Substance: DUTASTERIDE\TAMSULOSIN
     Indication: BENIGN PROSTATIC HYPERPLASIA
     Dosage: 1 UNK, QD
     Route: 048
     Dates: start: 20170404, end: 20170408

REACTIONS (1)
  - Prostatic operation [Recovering/Resolving]

NARRATIVE: CASE EVENT DATE: 20170408
